FAERS Safety Report 7168787-5 (Version None)
Quarter: 2010Q4

REPORT INFORMATION
  Report Type: 
  Country: None (occurrence: None)
  Receive Date: 20101216
  Receipt Date: 20101202
  Transmission Date: 20110411
  Serious: Yes (Hospitalization, Other)
  Sender: FDA-Public Use
  Company Number: US-AMGEN-KDL424593

PATIENT

DRUGS (15)
  1. NPLATE [Suspect]
     Indication: IDIOPATHIC THROMBOCYTOPENIC PURPURA
     Dosage: 80 A?G, UNK
     Dates: start: 20100518, end: 20101019
  2. NPLATE [Suspect]
     Dosage: 160 A?G, UNK
     Dates: start: 20101202
  3. NPLATE [Suspect]
     Dosage: UNK
     Dates: start: 20100518, end: 20101019
  4. DAPSONE [Concomitant]
     Dosage: UNK UNK, UNK
  5. FOLIC ACID [Concomitant]
     Dosage: UNK UNK, UNK
  6. ICAPS [Concomitant]
     Dosage: UNK UNK, UNK
  7. OMEPRAZOLE [Concomitant]
     Dosage: 40 MG, QD
     Route: 048
  8. SIMVASTATIN [Concomitant]
     Dosage: 20 MG, QD
     Route: 048
     Dates: end: 20101019
  9. TRAMADOL [Concomitant]
     Dosage: UNK UNK, UNK
  10. ERGOCALCIFEROL [Concomitant]
     Dosage: UNK UNK, UNK
  11. CORTICOSTEROIDS [Concomitant]
     Dosage: UNK
  12. CALCIUM CARBONATE/VITAMIN D3 [Concomitant]
     Dosage: 600 MG, QD
     Route: 048
  13. FLOMAX                             /01280302/ [Concomitant]
  14. MULTIVITAMIN                       /00097801/ [Concomitant]
  15. VITAMIN A [Concomitant]

REACTIONS (7)
  - ALOPECIA [None]
  - DEEP VEIN THROMBOSIS [None]
  - DEMYELINATING POLYNEUROPATHY [None]
  - EMBOLISM ARTERIAL [None]
  - HAEMOLYTIC ANAEMIA [None]
  - HYPOAESTHESIA [None]
  - THROMBOCYTOPENIA [None]
